FAERS Safety Report 9032687 (Version 1)
Quarter: 2013Q1

REPORT INFORMATION
  Report Type: Spontaneous
  Country: US (occurrence: None)
  Receive Date: 20130110
  Receipt Date: 20130110
  Transmission Date: 20140127
  Serious: Yes (Hospitalization)
  Sender: FDA-Public Use
  Company Number: PR-AE12-000602

PATIENT
  Sex: Male

DRUGS (1)
  1. GOODYS [Suspect]
     Indication: BACK PAIN
     Route: 048
     Dates: end: 2012

REACTIONS (1)
  - Gastric haemorrhage [None]
